FAERS Safety Report 12473448 (Version 1)
Quarter: 2016Q2

REPORT INFORMATION
  Report Type: Spontaneous
  Country: FR (occurrence: FR)
  Receive Date: 20160616
  Receipt Date: 20160616
  Transmission Date: 20160815
  Serious: Yes (Hospitalization)
  Sender: FDA-Public Use
  Company Number: FR-GLAXOSMITHKLINE-FR2016GSK085430

PATIENT
  Age: 61 Year
  Sex: Male

DRUGS (6)
  1. LAMICTAL [Suspect]
     Active Substance: LAMOTRIGINE
     Indication: EPILEPSY
     Dosage: 100 MG, QD
     Route: 048
     Dates: start: 20160203, end: 20160518
  2. XATRAL [Concomitant]
     Active Substance: ALFUZOSIN
  3. AMLOR [Concomitant]
     Active Substance: AMLODIPINE BESYLATE
  4. SERESTA [Concomitant]
     Active Substance: OXAZEPAM
  5. CARDENSIEL [Concomitant]
     Active Substance: BISOPROLOL FUMARATE
  6. ZYPREXA [Concomitant]
     Active Substance: OLANZAPINE

REACTIONS (1)
  - Vascular purpura [Recovering/Resolving]

NARRATIVE: CASE EVENT DATE: 201605
